FAERS Safety Report 15479512 (Version 2)
Quarter: 2018Q4

REPORT INFORMATION
  Report Type: Spontaneous
  Country: NO (occurrence: NO)
  Receive Date: 20181009
  Receipt Date: 20181016
  Transmission Date: 20190205
  Serious: Yes (Other)
  Sender: FDA-Public Use
  Company Number: NO-MYLANLABS-2018M1074231

PATIENT
  Sex: Female

DRUGS (1)
  1. LEVETIRACETAM. [Suspect]
     Active Substance: LEVETIRACETAM
     Indication: EPILEPSY
     Dosage: UNKNOWN DOSE

REACTIONS (2)
  - Exposure during pregnancy [Recovered/Resolved]
  - Pre-eclampsia [Unknown]
